FAERS Safety Report 18527954 (Version 2)
Quarter: 2020Q4

REPORT INFORMATION
  Report Type: Spontaneous
  Country: DE (occurrence: DE)
  Receive Date: 20201120
  Receipt Date: 20201215
  Transmission Date: 20210114
  Serious: Yes (Death, Other)
  Sender: FDA-Public Use
  Company Number: DE-HIKMA PHARMACEUTICALS USA INC.-DE-H14001-20-52639

PATIENT
  Age: 75 Year
  Sex: Female

DRUGS (1)
  1. CEFUROXIM HIKMA [Suspect]
     Active Substance: CEFUROXIME
     Indication: ANTIBIOTIC PROPHYLAXIS
     Route: 041
     Dates: start: 20201001

REACTIONS (6)
  - Hypotension [Unknown]
  - Anaphylactic shock [Fatal]
  - Respiratory failure [Unknown]
  - Resuscitation [Fatal]
  - Dyspnoea [Unknown]
  - Cardiopulmonary failure [Unknown]

NARRATIVE: CASE EVENT DATE: 20201001
